FAERS Safety Report 20084707 (Version 2)
Quarter: 2025Q2

REPORT INFORMATION
  Report Type: Spontaneous
  Country: IT (occurrence: IT)
  Receive Date: 20211118
  Receipt Date: 20250625
  Transmission Date: 20250717
  Serious: Yes (Other)
  Sender: AUROBINDO
  Company Number: IT-PFIZER INC-202101419395

PATIENT
  Age: 30 Year
  Sex: Male

DRUGS (6)
  1. METRONIDAZOLE [Suspect]
     Active Substance: METRONIDAZOLE
     Indication: Amoebiasis
     Route: 065
  2. METRONIDAZOLE [Suspect]
     Active Substance: METRONIDAZOLE
     Indication: Liver abscess
  3. PAROMOMYCIN SULFATE [Suspect]
     Active Substance: PAROMOMYCIN SULFATE
     Indication: Liver abscess
     Route: 065
  4. PAROMOMYCIN SULFATE [Suspect]
     Active Substance: PAROMOMYCIN SULFATE
     Indication: Amoebiasis
  5. DEXAMETHASONE [Concomitant]
     Active Substance: DEXAMETHASONE
     Indication: COVID-19
     Route: 065
  6. HEPARIN [Concomitant]
     Active Substance: HEPARIN SODIUM
     Indication: Prophylaxis
     Route: 065

REACTIONS (1)
  - Therapeutic product effect incomplete [Unknown]
